FAERS Safety Report 4692276-0 (Version None)
Quarter: 2005Q2

REPORT INFORMATION
  Report Type: 
  Country: None (occurrence: None)
  Receive Date: 20050614
  Receipt Date: 20050610
  Transmission Date: 20051028
  Serious: Yes (Hospitalization, Other)
  Sender: FDA-Public Use
  Company Number: HQWYE351310JUN05

PATIENT
  Age: 56 Year
  Sex: Male

DRUGS (1)
  1. OROKEN (CEFIXIME, TABLET) [Suspect]
     Indication: SEPSIS
     Dosage: 400 MG DAILY ORAL
     Route: 048
     Dates: start: 20050110, end: 20050416

REACTIONS (2)
  - ECZEMA [None]
  - ONYCHOLYSIS [None]
